FAERS Safety Report 8363406-4 (Version None)
Quarter: 2012Q2

REPORT INFORMATION
  Report Type: 
  Country: None (occurrence: None)
  Receive Date: 20120516
  Receipt Date: 20120327
  Transmission Date: 20120825
  Serious: Yes (Hospitalization)
  Sender: FDA-Public Use
  Company Number: US-ALEXION-A201101731

PATIENT
  Sex: Male

DRUGS (17)
  1. SOLIRIS [Suspect]
     Indication: HAEMOLYTIC URAEMIC SYNDROME
     Dosage: 300 MG, Q 3 WEEKS
     Route: 042
     Dates: start: 20111007, end: 20111125
  2. IRON [Concomitant]
     Dosage: UNK
  3. VISTARIL [Concomitant]
     Dosage: UNK
  4. EPOGEN [Concomitant]
     Dosage: UNK
  5. FENTANYL-100 [Concomitant]
     Dosage: UNK
  6. ANTIBIOTICS [Concomitant]
     Dosage: UNK
  7. HEMOPHILUS VACCINE [Concomitant]
     Dosage: UNK
     Dates: start: 20111108, end: 20111108
  8. VITAMIN D [Concomitant]
     Dosage: UNK
  9. HYDRALAZINE HCL [Concomitant]
     Dosage: UNK
  10. PNEUMOCOCCAL VACCINE [Concomitant]
     Dosage: UNK
     Dates: start: 20111108, end: 20111108
  11. ELECTROLYTE [Concomitant]
     Dosage: UNK
  12. HEMOPHILUS VACCINE [Concomitant]
     Dosage: UNK
     Dates: start: 20120130, end: 20120130
  13. SYNTHROID [Concomitant]
     Dosage: UNK
  14. PNEUMOCOCCAL VACCINE [Concomitant]
     Dosage: UNK
     Dates: start: 20120130, end: 20120130
  15. PENICILLIN [Concomitant]
     Indication: PROPHYLAXIS
  16. ANTIHYPERTENSIVES [Concomitant]
     Dosage: UNK
  17. VASOTEC [Concomitant]
     Dosage: UNK

REACTIONS (3)
  - SURGERY [None]
  - RENAL FAILURE [None]
  - MOTOR DYSFUNCTION [None]
